FAERS Safety Report 8424485-9 (Version None)
Quarter: 2012Q2

REPORT INFORMATION
  Report Type: 
  Country: None (occurrence: None)
  Receive Date: 20120611
  Receipt Date: 20120606
  Transmission Date: 20120825
  Serious: Yes (Other)
  Sender: FDA-Public Use
  Company Number: GR-AMGEN-GRCSP2012035435

PATIENT
  Sex: Female

DRUGS (1)
  1. PROLIA [Suspect]
     Indication: OSTEOPOROSIS
     Dosage: 60 MG, Q6MO
     Dates: start: 20110101

REACTIONS (5)
  - SKIN EXFOLIATION [None]
  - ALOPECIA [None]
  - BONE PAIN [None]
  - PRURITUS [None]
  - RASH GENERALISED [None]
